FAERS Safety Report 22109123 (Version 1)
Quarter: 2023Q1

REPORT INFORMATION
  Report Type: Spontaneous
  Country: US (occurrence: US)
  Receive Date: 20230317
  Receipt Date: 20230317
  Transmission Date: 20230418
  Serious: No
  Sender: FDA-Public Use
  Company Number: US-009507513-2303USA003401

PATIENT
  Age: 71 Year
  Sex: Male

DRUGS (4)
  1. REBETOL [Suspect]
     Active Substance: RIBAVIRIN
     Indication: Hepatitis C
     Dosage: UNK
     Route: 048
  2. SOFOSBUVIR [Suspect]
     Active Substance: SOFOSBUVIR
     Indication: Hepatitis C
     Dosage: UNK
  3. VELPATASVIR [Suspect]
     Active Substance: VELPATASVIR
     Indication: Hepatitis C
     Dosage: UNK
  4. VOXILAPREVIR [Suspect]
     Active Substance: VOXILAPREVIR
     Indication: Hepatitis C
     Dosage: UNK

REACTIONS (1)
  - Treatment failure [Unknown]
